FAERS Safety Report 7334024-1 (Version None)
Quarter: 2011Q1

REPORT INFORMATION
  Report Type: 
  Country: None (occurrence: None)
  Receive Date: 20110301
  Receipt Date: 20110301
  Transmission Date: 20110831
  Serious: Yes (Other)
  Sender: FDA-Public Use
  Company Number: None

PATIENT
  Sex: Male
  Weight: 112.0385 kg

DRUGS (1)
  1. PROPRANOLOL [Suspect]
     Indication: HYPERTENSION
     Dosage: 60MG BID MOUTH
     Route: 048
     Dates: start: 20070701, end: 20071201

REACTIONS (3)
  - SOMNOLENCE [None]
  - ANXIETY [None]
  - FATIGUE [None]
